FAERS Safety Report 12507524 (Version 1)
Quarter: 2016Q2

REPORT INFORMATION
  Report Type: Spontaneous
  Country: US (occurrence: None)
  Receive Date: 20160628
  Receipt Date: 20160628
  Transmission Date: 20160815
  Serious: Yes (Hospitalization)
  Sender: FDA-Public Use
  Company Number: None

PATIENT
  Age: 59 Year
  Sex: Male
  Weight: 92.41 kg

DRUGS (12)
  1. FOLIC ACID. [Concomitant]
     Active Substance: FOLIC ACID
  2. ASPIRIN. [Concomitant]
     Active Substance: ASPIRIN
  3. BISACODYL. [Concomitant]
     Active Substance: BISACODYL
  4. TRAZODONE [Concomitant]
     Active Substance: TRAZODONE HYDROCHLORIDE
  5. DEXAMETHASONE. [Concomitant]
     Active Substance: DEXAMETHASONE
     Dates: end: 20160621
  6. ALLOPURINOL. [Concomitant]
     Active Substance: ALLOPURINOL
  7. DOCUSATE [Concomitant]
     Active Substance: DOCUSATE
  8. CYANOCOBALAMIN. [Concomitant]
     Active Substance: CYANOCOBALAMIN
  9. HYDROCODONE [Concomitant]
     Active Substance: HYDROCODONE
  10. LENALIDOMIDE (CC-5013) [Suspect]
     Active Substance: LENALIDOMIDE
     Dates: end: 20160623
  11. BORTESZOMIB (VELCADE) [Concomitant]
     Dates: end: 20160620
  12. POLYETHLENE GLYCODL [Concomitant]

REACTIONS (9)
  - Chest pain [None]
  - Hyperhidrosis [None]
  - Chromaturia [None]
  - Thrombocytopenia [None]
  - Cough [None]
  - Hypoxia [None]
  - Dyspnoea [None]
  - Febrile neutropenia [None]
  - Haemoglobin decreased [None]

NARRATIVE: CASE EVENT DATE: 20160623
